FAERS Safety Report 5975658-6 (Version None)
Quarter: 2008Q4

REPORT INFORMATION
  Report Type: 
  Country: None (occurrence: None)
  Receive Date: 20081121
  Receipt Date: 20081119
  Transmission Date: 20090506
  Serious: Yes (Other)
  Sender: FDA-Public Use
  Company Number: A0757465A

PATIENT
  Age: 70 Year
  Sex: Female

DRUGS (3)
  1. ASPIRIN [Suspect]
     Indication: CEREBROVASCULAR ACCIDENT PROPHYLAXIS
     Dosage: ORAL
     Route: 048
     Dates: start: 20000101
  2. CLOPIDOGREL BISULFATE [Suspect]
     Indication: CEREBROVASCULAR ACCIDENT PROPHYLAXIS
     Dosage: 75 MG/ ORAL
     Route: 048
     Dates: start: 20000101
  3. LOSARTAN POTASSIUM [Concomitant]

REACTIONS (2)
  - TRANSIENT ISCHAEMIC ATTACK [None]
  - VERTIGO [None]
